FAERS Safety Report 5821328-4 (Version None)
Quarter: 2008Q3

REPORT INFORMATION
  Report Type: 
  Country: None (occurrence: None)
  Receive Date: 20080724
  Receipt Date: 20080715
  Transmission Date: 20090109
  Serious: Yes (Other)
  Sender: FDA-Public Use
  Company Number: US-MERCK-0807USA02768

PATIENT
  Age: 44 Year
  Sex: Male

DRUGS (2)
  1. DECADRON SRC [Suspect]
     Route: 048
  2. REVLIMID [Suspect]
     Indication: MULTIPLE MYELOMA
     Route: 048
     Dates: start: 20080116, end: 20080228

REACTIONS (1)
  - THROMBOSIS [None]
